FAERS Safety Report 5959569-8 (Version None)
Quarter: 2008Q4

REPORT INFORMATION
  Report Type: 
  Country: None (occurrence: None)
  Receive Date: 20081117
  Receipt Date: 20081103
  Transmission Date: 20090506
  Serious: Yes (Hospitalization)
  Sender: FDA-Public Use
  Company Number: 1000001659

PATIENT
  Age: 17 Year
  Sex: Female

DRUGS (9)
  1. CITALOPRAM HYDROBROMIDE [Suspect]
     Dosage: ORAL; INJECTION
     Route: 048
     Dates: start: 20080901, end: 20080922
  2. CITALOPRAM HYDROBROMIDE [Suspect]
     Dosage: ORAL; INJECTION
     Route: 048
     Dates: start: 20080909, end: 20080922
  3. RISPERDAL [Suspect]
     Indication: PSYCHOTIC DISORDER
     Dosage: ORAL
     Route: 048
     Dates: start: 20080905, end: 20080921
  4. AVLOCARDYL [Suspect]
     Indication: TACHYCARDIA
     Dosage: AS REQUIRED
     Dates: start: 20080907, end: 20080922
  5. TERCIAN [Suspect]
     Dates: start: 20080910, end: 20080917
  6. RIVOTRIL [Suspect]
     Dates: start: 20080913, end: 20080921
  7. LOXAPINE HCL [Concomitant]
  8. THERALENE [Concomitant]
  9. ATARAX [Concomitant]

REACTIONS (4)
  - EYELID OEDEMA [None]
  - PRURITUS [None]
  - RASH MACULO-PAPULAR [None]
  - TOXIC SKIN ERUPTION [None]
